FAERS Safety Report 12981251 (Version 2)
Quarter: 2017Q2

REPORT INFORMATION
  Report Type: Report from Study
  Country: US (occurrence: US)
  Receive Date: 20161129
  Receipt Date: 20170410
  Transmission Date: 20170830
  Serious: No
  Sender: FDA-Public Use
  Company Number: US-AMGEN-USASL2016156607

PATIENT
  Age: 37 Year
  Sex: Female

DRUGS (1)
  1. ENBREL [Suspect]
     Active Substance: ETANERCEPT
     Indication: ANKYLOSING SPONDYLITIS
     Dosage: 50 MG, QWK
     Route: 058

REACTIONS (8)
  - Injection site pruritus [Unknown]
  - Injection site rash [Recovering/Resolving]
  - Joint swelling [Recovered/Resolved]
  - Oral pain [Unknown]
  - Injection site swelling [Unknown]
  - Injection site erythema [Unknown]
  - Peripheral swelling [Recovered/Resolved]
  - Cough [Unknown]

NARRATIVE: CASE EVENT DATE: 20161021
